FAERS Safety Report 8456384-0 (Version None)
Quarter: 2012Q2

REPORT INFORMATION
  Report Type: 
  Country: None (occurrence: None)
  Receive Date: 20120621
  Receipt Date: 20120620
  Transmission Date: 20120825
  Serious: Yes (Hospitalization, Other)
  Sender: FDA-Public Use
  Company Number: CH-GLAXOSMITHKLINE-B0809512A

PATIENT
  Age: 32 Year
  Sex: Female
  Weight: 50 kg

DRUGS (2)
  1. ZYBAN [Suspect]
     Indication: BIPOLAR DISORDER
     Dosage: 150MG PER DAY
     Route: 048
     Dates: start: 20120301, end: 20120508
  2. FAMCICLOVIR [Concomitant]
     Indication: GENITAL HERPES
     Dosage: 250MG PER DAY
     Route: 048

REACTIONS (1)
  - GRAND MAL CONVULSION [None]
